FAERS Safety Report 18429327 (Version 1)
Quarter: 2020Q4

REPORT INFORMATION
  Report Type: Spontaneous
  Country: ES (occurrence: ES)
  Receive Date: 20201027
  Receipt Date: 20201027
  Transmission Date: 20210114
  Serious: Yes (Hospitalization, Other)
  Sender: FDA-Public Use
  Company Number: ES-AUROBINDO-AUR-APL-2020-053584

PATIENT
  Age: 52 Year
  Sex: Male

DRUGS (2)
  1. METHADONE [Concomitant]
     Active Substance: METHADONE HYDROCHLORIDE
     Indication: DRUG DEPENDENCE
     Dosage: 15 MILLIGRAM, ONCE A DAY
     Route: 065
  2. EFAVIRENZ. [Suspect]
     Active Substance: EFAVIRENZ
     Indication: HIV INFECTION
     Dosage: 400 MILLIGRAM, ONCE A DAY
     Route: 065

REACTIONS (8)
  - Hallucination, auditory [Unknown]
  - Delusional perception [Recovered/Resolved]
  - Psychotic behaviour [Recovered/Resolved]
  - Insomnia [Recovered/Resolved]
  - Central nervous system lesion [Unknown]
  - Suicidal ideation [Recovered/Resolved]
  - Atrophy [Unknown]
  - Mania [Recovered/Resolved]
